FAERS Safety Report 25115087 (Version 12)
Quarter: 2025Q3

REPORT INFORMATION
  Report Type: Spontaneous
  Country: US (occurrence: US)
  Receive Date: 20250324
  Receipt Date: 20250922
  Transmission Date: 20251021
  Serious: Yes (Other)
  Sender: PFIZER
  Company Number: US-PFIZER INC-202500058767

PATIENT
  Age: 76 Year
  Sex: Female
  Weight: 55.4 kg

DRUGS (4)
  1. TIVDAK [Suspect]
     Active Substance: TISOTUMAB VEDOTIN-TFTV
     Indication: Cervix carcinoma
     Dosage: 110 MG, EVERY 3 WEEKS
     Route: 042
  2. TIVDAK [Suspect]
     Active Substance: TISOTUMAB VEDOTIN-TFTV
     Indication: Transitional cell carcinoma
     Dosage: 110.8 MG, EVERY 3 WEEKS
     Route: 042
  3. TIVDAK [Suspect]
     Active Substance: TISOTUMAB VEDOTIN-TFTV
     Dosage: 111.2 MG, EVERY 3 WEEKS
     Route: 042
     Dates: start: 20250404
  4. TIVDAK [Suspect]
     Active Substance: TISOTUMAB VEDOTIN-TFTV
     Dosage: 72MG (VIA IV) ONCE EVERY 3 WEEKS
     Route: 042
     Dates: start: 20250630

REACTIONS (14)
  - Malignant neoplasm progression [Unknown]
  - Cervix carcinoma [Unknown]
  - Transitional cell carcinoma [Unknown]
  - Haematochezia [Unknown]
  - Off label use [Unknown]
  - Nasal congestion [Unknown]
  - Epistaxis [Unknown]
  - Vomiting [Unknown]
  - Headache [Unknown]
  - Bone pain [Unknown]
  - Viral infection [Unknown]
  - Nausea [Recovered/Resolved]
  - Ear discomfort [Unknown]
  - Weight decreased [Unknown]

NARRATIVE: CASE EVENT DATE: 20250430
